FAERS Safety Report 9975607 (Version 1)
Quarter: 2014Q1

REPORT INFORMATION
  Report Type: Report from Study
  Country: US (occurrence: US)
  Receive Date: 20140306
  Receipt Date: 20140306
  Transmission Date: 20141002
  Serious: No
  Sender: FDA-Public Use
  Company Number: US-ABBVIE-13P-163-1158653-00

PATIENT
  Age: 45 Year
  Sex: Female

DRUGS (4)
  1. HUMIRA [Suspect]
     Indication: COLITIS ULCERATIVE
     Dosage: INITIAL DOSE (NO LOADING DOSE ORDERED)
     Dates: start: 20131009
  2. LIALDA [Concomitant]
     Indication: COLITIS ULCERATIVE
     Dosage: 4 TABS DAILY
  3. PREDNISONE [Concomitant]
     Indication: COLITIS ULCERATIVE
     Dosage: 10 MG DAILY
  4. PREDNISONE [Concomitant]
     Indication: ARTHRITIS

REACTIONS (2)
  - Injection site warmth [Recovered/Resolved]
  - Injection site pain [Recovered/Resolved]
